FAERS Safety Report 5766042-9 (Version None)
Quarter: 2008Q2

REPORT INFORMATION
  Report Type: 
  Country: None (occurrence: None)
  Receive Date: 20080611
  Receipt Date: 20080530
  Transmission Date: 20081010
  Serious: Yes (Other)
  Sender: FDA-Public Use
  Company Number: US-PFIZER INC-2008046381

PATIENT
  Sex: Female
  Weight: 102.27 kg

DRUGS (9)
  1. LYRICA [Suspect]
     Indication: FIBROMYALGIA
     Dates: start: 20080301, end: 20080528
  2. AZITHROMYCIN [Suspect]
     Indication: INFLUENZA
  3. HYZAAR [Concomitant]
  4. LIPITOR [Concomitant]
  5. LEXAPRO [Concomitant]
  6. AMBIEN [Concomitant]
  7. ZYRTEC [Concomitant]
  8. IBUROFEN [Concomitant]
  9. OXYCODONE HCL [Concomitant]

REACTIONS (7)
  - CHILLS [None]
  - DIZZINESS [None]
  - INFLUENZA [None]
  - MUSCULOSKELETAL PAIN [None]
  - MUSCULOSKELETAL STIFFNESS [None]
  - PYREXIA [None]
  - ROAD TRAFFIC ACCIDENT [None]
